FAERS Safety Report 18669126 (Version 5)
Quarter: 2021Q1

REPORT INFORMATION
  Report Type: Spontaneous
  Country: US (occurrence: US)
  Receive Date: 20201228
  Receipt Date: 20210318
  Transmission Date: 20210419
  Serious: No
  Sender: FDA-Public Use
  Company Number: US-GLAXOSMITHKLINE-US2020AMR252396

PATIENT
  Age: 40 Year
  Sex: Female

DRUGS (5)
  1. ZEJULA [Suspect]
     Active Substance: NIRAPARIB
     Indication: OVARIAN CANCER
     Dosage: 200 MG, QD (8PM W/ FOOD)
     Dates: start: 20201211
  2. ZEJULA [Suspect]
     Active Substance: NIRAPARIB
     Dosage: 100 MG, QD
     Dates: start: 20201228
  3. ZEJULA [Suspect]
     Active Substance: NIRAPARIB
     Dosage: 100 MG, QD
     Route: 048
     Dates: end: 20210214
  4. ZEJULA [Suspect]
     Active Substance: NIRAPARIB
     Dosage: 100 MG, QD
     Route: 048
  5. ZEJULA [Suspect]
     Active Substance: NIRAPARIB
     Dosage: 100 MG, QD
     Route: 048
     Dates: start: 20210210

REACTIONS (17)
  - Nausea [Recovering/Resolving]
  - Laboratory test abnormal [Unknown]
  - Vision blurred [Unknown]
  - Eye swelling [Unknown]
  - Peripheral swelling [Recovering/Resolving]
  - Swelling of eyelid [Unknown]
  - Abdominal pain upper [Not Recovered/Not Resolved]
  - Asthenia [Unknown]
  - Fatigue [Unknown]
  - Initial insomnia [Unknown]
  - Blood potassium decreased [Unknown]
  - Heart rate increased [Unknown]
  - Tongue ulceration [Unknown]
  - Pain [Recovering/Resolving]
  - Pyrexia [Recovered/Resolved]
  - Hot flush [Unknown]
  - Abdominal pain [Not Recovered/Not Resolved]

NARRATIVE: CASE EVENT DATE: 202102
